FAERS Safety Report 7944585-7 (Version None)
Quarter: 2011Q4

REPORT INFORMATION
  Report Type: 
  Country: None (occurrence: None)
  Receive Date: 20111129
  Receipt Date: 20111117
  Transmission Date: 20120403
  Serious: Yes (Hospitalization)
  Sender: FDA-Public Use
  Company Number: DE-ELI_LILLY_AND_COMPANY-DE201111005726

PATIENT
  Sex: Female

DRUGS (3)
  1. FORTEO [Suspect]
     Indication: OSTEOPOROSIS
     Dosage: UNK, QD
     Route: 058
     Dates: start: 20110512, end: 20111114
  2. ANALGESICS [Concomitant]
  3. OPIOIDS [Concomitant]

REACTIONS (4)
  - HIP ARTHROPLASTY [None]
  - HAEMORRHAGE [None]
  - LYMPHADENOPATHY [None]
  - FALL [None]
